FAERS Safety Report 4897204-0 (Version None)
Quarter: 2006Q2

REPORT INFORMATION
  Report Type: 
  Country: None (occurrence: None)
  Receive Date: 20060127
  Receipt Date: 20060116
  Transmission Date: 20061013
  Serious: Yes (Hospitalization)
  Sender: FDA-Public Use
  Company Number: DEWYE300616JAN06

PATIENT
  Age: 37 Year
  Sex: Female

DRUGS (17)
  1. LEVONORGESTREL + ETHINYL ESTRADIOL [Suspect]
     Indication: CONTRACEPTION
     Dosage: 1 TABLET, ORAL
     Route: 048
     Dates: start: 19970101, end: 20030901
  2. LEVONORGESTREL + ETHINYL ESTRADIOL [Suspect]
     Indication: CONTRACEPTION
     Dosage: 1 TABLET, ORAL
     Route: 048
     Dates: start: 20040715, end: 20041115
  3. LEVOTHYROXINE SODIUM [Concomitant]
  4. BERLOSIN (METAMIZOLE SODIUM) [Concomitant]
  5. FRAGMIN [Concomitant]
  6. FAUSTAN (DIAZEPAM) [Concomitant]
  7. BALDRIPARAN STARK N  (HOPS/MELISSA/VALERIAN) [Concomitant]
  8. PANTOPRAZOLE SODIUM [Concomitant]
  9. SANDIMMUNE [Concomitant]
  10. CELLCEPT [Concomitant]
  11. PREDNISOLONE [Concomitant]
  12. ACYCLOVIR [Concomitant]
  13. BELOC-ZOC FORTE (METOPROLOL SUCCINATE) [Concomitant]
  14. FOLIC ACID [Concomitant]
  15. COTRIM FORTE (SULFAMETHOXAZOLE/TRIMETHOPRIM) [Concomitant]
  16. FERRLECIT (SODIUM FERRIC GLUCONATE COMPLEX) [Concomitant]
  17. CYANOCOBALAMIN [Concomitant]

REACTIONS (2)
  - BLOOD CREATININE INCREASED [None]
  - HEPATITIS ACUTE [None]
